FAERS Safety Report 23409739 (Version 1)
Quarter: 2024Q1

REPORT INFORMATION
  Report Type: Spontaneous
  Country: US (occurrence: US)
  Receive Date: 20240117
  Receipt Date: 20240117
  Transmission Date: 20240410
  Serious: Yes (Other)
  Sender: FDA-Public Use
  Company Number: US-MYLANLABS-2024M1004201

PATIENT
  Age: 25 Year
  Sex: Male

DRUGS (3)
  1. EVEROLIMUS [Suspect]
     Active Substance: EVEROLIMUS
     Indication: Neurofibromatosis
     Dosage: 10 MILLIGRAM, QD
     Route: 065
  2. SELUMETINIB [Concomitant]
     Active Substance: SELUMETINIB
     Indication: Neurofibromatosis
     Dosage: 25 MILLIGRAM/KILOGRAM, BID
     Route: 065
  3. SELUMETINIB [Concomitant]
     Active Substance: SELUMETINIB
     Dosage: 25 MILLIGRAM/KILOGRAM, BID (RESTARTED)
     Route: 065

REACTIONS (3)
  - Stomatitis [Unknown]
  - Rash maculo-papular [Unknown]
  - Off label use [Unknown]
